FAERS Safety Report 10250025 (Version 1)
Quarter: 2014Q2

REPORT INFORMATION
  Report Type: Spontaneous
  Country: US (occurrence: US)
  Receive Date: 20140620
  Receipt Date: 20140620
  Transmission Date: 20141212
  Serious: No
  Sender: FDA-Public Use
  Company Number: US-BRISTOL-MYERS SQUIBB COMPANY-20588810

PATIENT
  Age: 86 Year
  Sex: Male
  Weight: 63.49 kg

DRUGS (5)
  1. ELIQUIS [Suspect]
  2. DIGOXIN [Concomitant]
  3. METOPROLOL [Concomitant]
  4. BABY ASPIRIN [Concomitant]
  5. FOLIC ACID [Concomitant]

REACTIONS (1)
  - Fatigue [Unknown]
